FAERS Safety Report 13547387 (Version 1)
Quarter: 2017Q2

REPORT INFORMATION
  Report Type: Report from Study
  Country: CA (occurrence: CA)
  Receive Date: 20170515
  Receipt Date: 20170515
  Transmission Date: 20170830
  Serious: Yes (Death)
  Sender: FDA-Public Use
  Company Number: CA-HLSUS-2017-CA-000476

PATIENT
  Age: 37 Year
  Sex: Male

DRUGS (1)
  1. CLOZARIL [Suspect]
     Active Substance: CLOZAPINE
     Route: 048
     Dates: start: 20151014

REACTIONS (1)
  - Death [Fatal]

NARRATIVE: CASE EVENT DATE: 20170506
